FAERS Safety Report 8108894 (Version 2)
Quarter: 2022Q2

REPORT INFORMATION
  Report Type: Spontaneous
  Country: HK (occurrence: HK)
  Receive Date: 20110826
  Receipt Date: 20220415
  Transmission Date: 20220721
  Serious: Yes (Death, Hospitalization, Other)
  Sender: FDA-Public Use
  Company Number: HK-SANOFI-AVENTIS-2011SA054700

PATIENT
  Age: 29 Year
  Sex: Female

DRUGS (2)
  1. HYDROXYCHLOROQUINE [Suspect]
     Active Substance: HYDROXYCHLOROQUINE
     Indication: Suicide attempt
     Dosage: 1X (100 TABLETS, 200 MG/TABLET)
     Route: 048
     Dates: start: 201006, end: 201006
  2. PREDNISOLONE [Concomitant]
     Active Substance: PREDNISOLONE
     Dosage: UNK
     Dates: start: 201006, end: 201006

REACTIONS (8)
  - Shock [Fatal]
  - Intentional overdose [Fatal]
  - Cardiac arrest [Fatal]
  - Tachycardia [Fatal]
  - Hypotension [Fatal]
  - Cardiac contractility decreased [Fatal]
  - Ventricular arrhythmia [Fatal]
  - Hypokalaemia [Fatal]

NARRATIVE: CASE EVENT DATE: 20100601
